FAERS Safety Report 25207422 (Version 1)
Quarter: 2025Q2

REPORT INFORMATION
  Report Type: Spontaneous
  Country: JP (occurrence: JP)
  Receive Date: 20250417
  Receipt Date: 20250417
  Transmission Date: 20250717
  Serious: Yes (Other)
  Sender: ACCORD
  Company Number: JP-Accord-479185

PATIENT
  Age: 77 Year
  Sex: Female

DRUGS (6)
  1. OXALIPLATIN [Suspect]
     Active Substance: OXALIPLATIN
     Indication: Gastric cancer stage IV
  2. TS-1 [Concomitant]
     Active Substance: GIMERACIL\OTERACIL POTASSIUM\TEGAFUR
     Indication: Gastric cancer stage IV
  3. NIVOLUMAB [Concomitant]
     Active Substance: NIVOLUMAB
     Indication: Gastric cancer stage IV
  4. NIVOLUMAB [Concomitant]
     Active Substance: NIVOLUMAB
     Indication: Human epidermal growth factor receptor negative
  5. TS-1 [Concomitant]
     Active Substance: GIMERACIL\OTERACIL POTASSIUM\TEGAFUR
     Indication: Human epidermal growth factor receptor negative
  6. OXALIPLATIN [Suspect]
     Active Substance: OXALIPLATIN
     Indication: Human epidermal growth factor receptor negative

REACTIONS (5)
  - Thrombocytopenia [Not Recovered/Not Resolved]
  - Venoocclusive liver disease [Unknown]
  - Portal shunt [Recovered/Resolved]
  - Hyperammonaemia [Recovering/Resolving]
  - Portal hypertension [Not Recovered/Not Resolved]
